FAERS Safety Report 12226043 (Version 2)
Quarter: 2016Q2

REPORT INFORMATION
  Report Type: Spontaneous
  Country: IT (occurrence: IT)
  Receive Date: 20160331
  Receipt Date: 20160408
  Transmission Date: 20160815
  Serious: Yes (Other)
  Sender: FDA-Public Use
  Company Number: IT-KADMON PHARMACEUTICALS, LLC-KAD201603-001170

PATIENT
  Age: 71 Year
  Sex: Male

DRUGS (13)
  1. DEURSIL [Concomitant]
     Active Substance: URSODIOL
  2. RIBAVIRIN. [Suspect]
     Active Substance: RIBAVIRIN
     Indication: CHRONIC HEPATITIS C
     Dosage: TABLET
     Route: 048
     Dates: start: 20151112, end: 20160222
  3. SOVALDI [Suspect]
     Active Substance: SOFOSBUVIR
     Indication: CHRONIC HEPATITIS C
     Route: 048
     Dates: start: 20151112, end: 20160222
  4. LASIX [Concomitant]
     Active Substance: FUROSEMIDE
  5. ZEFFIX [Concomitant]
     Active Substance: LAMIVUDINE
  6. DIDROGYL [Concomitant]
     Active Substance: CALCIFEDIOL
  7. OLYSIO [Suspect]
     Active Substance: SIMEPREVIR
     Indication: CHRONIC HEPATITIS C
     Dosage: CAPSULE
     Route: 048
     Dates: start: 20151112, end: 20160222
  8. LIMPIDEX [Concomitant]
     Active Substance: LANSOPRAZOLE
  9. NIULIVA [Concomitant]
  10. DELTACORTENE [Concomitant]
     Active Substance: PREDNISONE
  11. AMOXICILLIN. [Concomitant]
     Active Substance: AMOXICILLIN
  12. ZESTRIL [Concomitant]
     Active Substance: LISINOPRIL
  13. SIROLIMUS. [Concomitant]
     Active Substance: SIROLIMUS

REACTIONS (1)
  - Macroglossia [Recovered/Resolved]

NARRATIVE: CASE EVENT DATE: 20160222
